FAERS Safety Report 5082711-0 (Version None)
Quarter: 2006Q3

REPORT INFORMATION
  Report Type: 
  Country: None (occurrence: None)
  Receive Date: 20060817
  Receipt Date: 20060808
  Transmission Date: 20061208
  Serious: Yes (Hospitalization)
  Sender: FDA-Public Use
  Company Number: DK-BRISTOL-MYERS SQUIBB COMPANY-13474549

PATIENT
  Age: 74 Year
  Sex: Male

DRUGS (7)
  1. METFORMIN HYDROCHLORIDE [Suspect]
     Indication: DIABETES MELLITUS NON-INSULIN-DEPENDENT
     Route: 048
     Dates: start: 20010101
  2. DIGOXIN [Concomitant]
     Indication: ATRIAL FIBRILLATION
  3. METOPROLOL [Concomitant]
     Indication: ATRIAL FIBRILLATION
  4. WARFARIN SODIUM [Concomitant]
     Indication: ATRIAL FIBRILLATION
  5. FUROSEMIDE [Concomitant]
     Indication: OEDEMA PERIPHERAL
  6. SPIRONOLACTONE [Concomitant]
     Indication: OEDEMA PERIPHERAL
  7. ALLOPURINOL [Concomitant]
     Indication: OEDEMA PERIPHERAL

REACTIONS (6)
  - AZOTAEMIA [None]
  - DRUG INTERACTION [None]
  - HYPERKALAEMIA [None]
  - INTERNATIONAL NORMALISED RATIO ABNORMAL [None]
  - METABOLIC ACIDOSIS [None]
  - RENAL IMPAIRMENT [None]
